FAERS Safety Report 26105849 (Version 1)
Quarter: 2025Q4

REPORT INFORMATION
  Report Type: Spontaneous
  Country: EU (occurrence: EU)
  Receive Date: 20251201
  Receipt Date: 20251201
  Transmission Date: 20260118
  Serious: Yes (Other)
  Sender: ACCORD
  Company Number: None

PATIENT
  Age: 72 Year
  Sex: Female

DRUGS (2)
  1. DAPTOMYCIN [Suspect]
     Active Substance: DAPTOMYCIN
     Indication: Product used for unknown indication
     Dates: start: 20190711, end: 20190712
  2. RIFAMPIN [Suspect]
     Active Substance: RIFAMPIN
     Indication: Arthritis infective
     Dates: start: 20190629, end: 20190712

REACTIONS (3)
  - Urticaria [Recovered/Resolved]
  - Neutropenia [Recovered/Resolved]
  - Rash [Recovered/Resolved]

NARRATIVE: CASE EVENT DATE: 20190705
